FAERS Safety Report 22374884 (Version 1)
Quarter: 2023Q2

REPORT INFORMATION
  Report Type: Spontaneous
  Country: US (occurrence: None)
  Receive Date: 20230527
  Receipt Date: 20230527
  Transmission Date: 20230722
  Serious: Yes (Hospitalization, Other)
  Sender: FDA-Public Use
  Company Number: US-Unichem Pharmaceuticals (USA) Inc-UCM202305-000630

PATIENT
  Age: 25 Year
  Sex: Female

DRUGS (1)
  1. CLONIDINE HYDROCHLORIDE [Suspect]
     Active Substance: CLONIDINE HYDROCHLORIDE
     Indication: Product used for unknown indication
     Dosage: AT LEAST TEN PILLS

REACTIONS (5)
  - Caesarean section [Unknown]
  - Intentional overdose [Unknown]
  - Hypotension [Recovered/Resolved]
  - Bradycardia [Recovered/Resolved]
  - Exposure during pregnancy [Unknown]
